FAERS Safety Report 10264794 (Version 1)
Quarter: 2014Q2

REPORT INFORMATION
  Report Type: Spontaneous
  Country: US (occurrence: None)
  Receive Date: 20140625
  Receipt Date: 20140625
  Transmission Date: 20141212
  Serious: Yes (Other)
  Sender: FDA-Public Use
  Company Number: None

PATIENT
  Sex: Female
  Weight: 61.24 kg

DRUGS (2)
  1. ESCITALOPRAM OXALATE [Suspect]
     Indication: BIPOLAR DISORDER
     Route: 048
  2. ESCITALOPRAM OXALATE [Suspect]
     Indication: DEPRESSION
     Route: 048

REACTIONS (4)
  - Anger [None]
  - Product substitution issue [None]
  - Drug ineffective [None]
  - Unevaluable event [None]
